FAERS Safety Report 8528471-X (Version None)
Quarter: 2012Q3

REPORT INFORMATION
  Report Type: 
  Country: None (occurrence: None)
  Receive Date: 20120723
  Receipt Date: 20120711
  Transmission Date: 20120928
  Serious: Yes (Death)
  Sender: FDA-Public Use
  Company Number: CO-AMGEN-COLSP2012045099

PATIENT
  Sex: Female

DRUGS (1)
  1. NEULASTIM [Suspect]
     Indication: NEUTROPENIA
     Route: 058

REACTIONS (2)
  - NEUTROPENIA [None]
  - SEPTIC SHOCK [None]
